FAERS Safety Report 9093264 (Version 1)
Quarter: 2013Q1

REPORT INFORMATION
  Report Type: Spontaneous
  Country: US (occurrence: US)
  Receive Date: 20130201
  Receipt Date: 20130201
  Transmission Date: 20140127
  Serious: Yes (Other)
  Sender: FDA-Public Use
  Company Number: US-ROCHE-1102734

PATIENT
  Sex: Male
  Weight: 63.56 kg

DRUGS (6)
  1. ACCUTANE [Suspect]
     Indication: ACNE
     Route: 048
     Dates: start: 1983
  2. ACCUTANE [Suspect]
     Route: 048
     Dates: start: 198401, end: 198404
  3. ACCUTANE [Suspect]
     Route: 048
     Dates: start: 198401, end: 198404
  4. ACCUTANE [Suspect]
     Route: 048
     Dates: start: 198601, end: 198604
  5. ACCUTANE [Suspect]
     Route: 048
     Dates: start: 200103, end: 200111
  6. ACCUTANE [Suspect]
     Route: 048
     Dates: start: 200204, end: 200211

REACTIONS (4)
  - Colitis ulcerative [Unknown]
  - Emotional disorder [Unknown]
  - Depression [Unknown]
  - Colon cancer [Unknown]
